FAERS Safety Report 9527662 (Version 1)
Quarter: 2013Q3

REPORT INFORMATION
  Report Type: Spontaneous
  Country: US (occurrence: US)
  Receive Date: 20130917
  Receipt Date: 20130917
  Transmission Date: 20140515
  Serious: No
  Sender: FDA-Public Use
  Company Number: US-B.I. PHARMACEUTICALS,INC./RIDGEFIELD-2013-BI-27868BP

PATIENT
  Age: 82 Year
  Sex: Female

DRUGS (3)
  1. CATAPRES [Suspect]
     Indication: HYPERTENSION
     Dosage: 0.1 MG
     Route: 048
     Dates: start: 2000
  2. CATAPRES [Suspect]
     Indication: HYPERTENSION
     Dosage: 5 MG
     Route: 061
     Dates: start: 20130903
  3. CATAPRES [Suspect]
     Dosage: 7.5 MG
     Route: 061
     Dates: start: 2000, end: 20130903

REACTIONS (2)
  - Insomnia [Not Recovered/Not Resolved]
  - Blood pressure increased [Not Recovered/Not Resolved]
